FAERS Safety Report 23188392 (Version 1)
Quarter: 2023Q4

REPORT INFORMATION
  Report Type: Other
  Country: CA (occurrence: CA)
  Receive Date: 20231115
  Receipt Date: 20231115
  Transmission Date: 20240109
  Serious: Yes (Other)
  Sender: FDA-Public Use
  Company Number: CA-PFIZER INC-202300360527

PATIENT
  Age: 13 Year
  Sex: Male

DRUGS (2)
  1. SOMATROPIN [Suspect]
     Active Substance: SOMATROPIN
     Indication: Short stature
     Dosage: UNK, WEEKLY
  2. SOMATROPIN [Suspect]
     Active Substance: SOMATROPIN
     Dosage: UNK, WEEKLY

REACTIONS (4)
  - Off label use [Recovering/Resolving]
  - Condition aggravated [Recovering/Resolving]
  - Joint contracture [Recovering/Resolving]
  - Osteochondrosis [Recovering/Resolving]
